FAERS Safety Report 12610963 (Version 2)
Quarter: 2016Q4

REPORT INFORMATION
  Report Type: Report from Study
  Country: US (occurrence: US)
  Receive Date: 20160801
  Receipt Date: 20161024
  Transmission Date: 20170207
  Serious: Yes (Hospitalization, Other)
  Sender: FDA-Public Use
  Company Number: US-009507513-1607USA008261

PATIENT
  Age: 62 Year
  Sex: Male
  Weight: 72.6 kg

DRUGS (10)
  1. PRILOSEC [Concomitant]
     Active Substance: OMEPRAZOLE MAGNESIUM
     Dosage: UNK
  2. TEMODAR [Suspect]
     Active Substance: TEMOZOLOMIDE
     Indication: GLIOBLASTOMA
     Dosage: UNK, QD
     Route: 048
     Dates: start: 20151231
  3. TEMODAR [Suspect]
     Active Substance: TEMOZOLOMIDE
     Dosage: 50 MG/M2 (100 MG), QD
     Route: 048
     Dates: start: 20160113, end: 20160214
  4. KEPPRA [Concomitant]
     Active Substance: LEVETIRACETAM
     Dosage: UNK
  5. AVASTIN [Suspect]
     Active Substance: BEVACIZUMAB
     Dosage: MAINTENANCE
     Dates: start: 20150317, end: 20151220
  6. AVASTIN [Suspect]
     Active Substance: BEVACIZUMAB
     Dosage: 10 MG/KG, EVERY 2 WEEKS
     Route: 042
     Dates: start: 20151231
  7. PRINIVIL [Concomitant]
     Active Substance: LISINOPRIL
     Dosage: UNK
  8. NORVASC [Concomitant]
     Active Substance: AMLODIPINE BESYLATE
     Dosage: UNK
  9. AVASTIN [Suspect]
     Active Substance: BEVACIZUMAB
     Indication: GLIOBLASTOMA
     Dosage: 10 MG/KG (800 MG), EVERY 2 WEEKS
     Route: 042
     Dates: start: 20140103
  10. ETOPOSIDE. [Suspect]
     Active Substance: ETOPOSIDE
     Indication: GLIOBLASTOMA
     Dosage: 100 MG, QD
     Route: 048
     Dates: start: 20160323, end: 20160411

REACTIONS (14)
  - Dehydration [Unknown]
  - Hypocalcaemia [Unknown]
  - Hypertension [Unknown]
  - Urinary tract infection [Unknown]
  - White blood cell count decreased [Unknown]
  - Malignant neoplasm progression [Unknown]
  - Proteinuria [Unknown]
  - Fall [Unknown]
  - Anaemia [Unknown]
  - Asthenia [Unknown]
  - Neutrophil count decreased [Unknown]
  - Fatigue [Unknown]
  - Febrile neutropenia [Unknown]
  - Pyrexia [Unknown]

NARRATIVE: CASE EVENT DATE: 20150623
